FAERS Safety Report 4464239-1 (Version None)
Quarter: 2004Q4

REPORT INFORMATION
  Report Type: 
  Country: None (occurrence: None)
  Receive Date: 20041001
  Receipt Date: 20040921
  Transmission Date: 20050328
  Serious: Yes (Life-Threatening)
  Sender: FDA-Public Use
  Company Number: EG-JNJFOC-20040907554

PATIENT
  Age: 16 Year
  Sex: Female

DRUGS (4)
  1. TOPAMAX [Suspect]
     Route: 049
  2. TOPAMAX [Suspect]
     Route: 049
  3. ZARONTIN [Suspect]
     Indication: DRUG USE FOR UNKNOWN INDICATION
     Route: 049
  4. CARBAMAZEPINE [Concomitant]
     Route: 049

REACTIONS (1)
  - ABNORMAL BEHAVIOUR [None]
